FAERS Safety Report 7624949-1 (Version None)
Quarter: 2011Q3

REPORT INFORMATION
  Report Type: 
  Country: None (occurrence: None)
  Receive Date: 20110720
  Receipt Date: 20110715
  Transmission Date: 20111222
  Serious: Yes (Other)
  Sender: FDA-Public Use
  Company Number: US-AMGEN-USASP2011002516

PATIENT
  Age: 74 Year
  Sex: Male
  Weight: 112.2 kg

DRUGS (16)
  1. NOVOLIN                            /00030501/ [Concomitant]
  2. FLOMAX [Concomitant]
  3. OMEPRAZOLE [Concomitant]
  4. SIMVASTATIN [Concomitant]
  5. LISINOPRIL [Concomitant]
  6. METOPROLOL SUCCINATE [Concomitant]
  7. CORTICOSTEROIDS [Concomitant]
  8. LORATADINE [Concomitant]
  9. SPIRONOLACTONE [Concomitant]
  10. ACETAMINOPHEN AND HYDROCODONE BITARTRATE [Concomitant]
  11. AMLODIPINE BESYLATE [Concomitant]
  12. CLONIDINE [Concomitant]
  13. TRAZODONE                          /00447702/ [Concomitant]
  14. NPLATE [Suspect]
     Indication: IDIOPATHIC THROMBOCYTOPENIC PURPURA
     Dosage: 1 A?G/KG, UNK
     Dates: start: 20100809, end: 20100929
  15. LEVOTHYROXINE SODIUM [Concomitant]
  16. MULTI-VITAMINS [Concomitant]

REACTIONS (5)
  - PARAESTHESIA [None]
  - FATIGUE [None]
  - FEELING ABNORMAL [None]
  - HYPOAESTHESIA [None]
  - MYALGIA [None]
